FAERS Safety Report 11779450 (Version 1)
Quarter: 2015Q4

REPORT INFORMATION
  Report Type: Spontaneous
  Country: SE (occurrence: SE)
  Receive Date: 20151125
  Receipt Date: 20151125
  Transmission Date: 20160304
  Serious: Yes (Life-Threatening, Hospitalization)
  Sender: FDA-Public Use
  Company Number: SE-TEVA-611574ISR

PATIENT
  Age: 23 Year
  Sex: Male

DRUGS (7)
  1. CYTARABINE. [Concomitant]
     Active Substance: CYTARABINE
     Route: 065
     Dates: start: 201406
  2. ATRA (ALL-TRANS-RETINOIC-ACID) [Concomitant]
     Indication: ACUTE PROMYELOCYTIC LEUKAEMIA
     Route: 065
     Dates: start: 201406
  3. MERCAPTOPURINE. [Concomitant]
     Active Substance: MERCAPTOPURINE
     Indication: ACUTE PROMYELOCYTIC LEUKAEMIA
     Route: 065
     Dates: start: 201406
  4. NIVESTIM [Concomitant]
     Active Substance: FILGRASTIM
     Indication: STEM CELL TRANSPLANT
     Route: 065
     Dates: start: 20151022
  5. TRISENOX [Suspect]
     Active Substance: ARSENIC TRIOXIDE
     Indication: ACUTE PROMYELOCYTIC LEUKAEMIA
     Route: 041
     Dates: start: 20150626, end: 20150924
  6. IDARUBICIN [Concomitant]
     Active Substance: IDARUBICIN
     Indication: ACUTE PROMYELOCYTIC LEUKAEMIA
     Route: 065
     Dates: start: 201406
  7. METHOTREXATE [Concomitant]
     Active Substance: METHOTREXATE
     Indication: ACUTE PROMYELOCYTIC LEUKAEMIA
     Route: 048
     Dates: start: 201406, end: 201406

REACTIONS (12)
  - Cerebral haemorrhage [Unknown]
  - Neutropenia [Unknown]
  - Alopecia [Unknown]
  - Thrombocytopenia [Unknown]
  - Anaemia [Unknown]
  - Acute promyelocytic leukaemia differentiation syndrome [Unknown]
  - Renal failure [Unknown]
  - Bone marrow failure [Unknown]
  - Tumour lysis syndrome [Unknown]
  - Stomatitis [Unknown]
  - Pharyngeal inflammation [Unknown]
  - Pulmonary oedema [Unknown]

NARRATIVE: CASE EVENT DATE: 201506
